FAERS Safety Report 5050834-8 (Version None)
Quarter: 2006Q3

REPORT INFORMATION
  Report Type: 
  Country: None (occurrence: None)
  Receive Date: 20060710
  Receipt Date: 20060626
  Transmission Date: 20061208
  Serious: Yes (Hospitalization)
  Sender: FDA-Public Use
  Company Number: 2006081245

PATIENT
  Age: 63 Year
  Sex: Female
  Weight: 75 kg

DRUGS (6)
  1. SOLU-MEDROL [Suspect]
     Indication: BREAST CANCER
     Dosage: 120 MG, INTRAVENOUS
     Route: 042
     Dates: start: 20060407, end: 20060407
  2. PACLITAXEL [Suspect]
     Indication: BREAST CANCER
     Dosage: 300 MG (300 MG), INTRAVENOUS
     Route: 042
     Dates: start: 20060407, end: 20060407
  3. RANITIDINE [Suspect]
     Dosage: 50 MG (50 MG), INTRAVENOUS
     Route: 042
     Dates: start: 20060407, end: 20060407
  4. DEXCHLORPHENIRAMINE MALEATE [Suspect]
     Dosage: 5 MG (5 MG), INTRAVENOUS
     Route: 042
     Dates: start: 20060407, end: 20060407
  5. GEMCITABINE [Suspect]
     Indication: BREAST CANCER
     Dosage: 2300 MG (2300 MG), INTRAVENOUS
     Route: 042
     Dates: start: 20060407, end: 20060407
  6. KYTRIL [Suspect]
     Indication: BREAST CANCER
     Dosage: 3 MG (3 MG), INTRAVENOUS
     Route: 042
     Dates: start: 20060407, end: 20060407

REACTIONS (2)
  - PRURITUS [None]
  - RASH [None]
